FAERS Safety Report 9171881 (Version 1)
Quarter: 2013Q1

REPORT INFORMATION
  Report Type: Spontaneous
  Country: US (occurrence: None)
  Receive Date: 20130318
  Receipt Date: 20130318
  Transmission Date: 20140127
  Serious: Yes (Death)
  Sender: FDA-Public Use
  Company Number: ADR-2013UNK045

PATIENT
  Age: 42 Day
  Sex: 0

DRUGS (2)
  1. EFAVIRENZ [Suspect]
     Indication: ACQUIRED IMMUNODEFICIENCY SYNDROME
     Route: 048
     Dates: start: 20100211
  2. TRUVADA [Concomitant]

REACTIONS (2)
  - Selective abortion [None]
  - Maternal exposure during pregnancy [None]
